FAERS Safety Report 4294696-5 (Version None)
Quarter: 2004Q1

REPORT INFORMATION
  Report Type: 
  Country: None (occurrence: None)
  Receive Date: 20040213
  Receipt Date: 20020801
  Transmission Date: 20041129
  Serious: Yes (Hospitalization)
  Sender: FDA-Public Use
  Company Number: AU-ROCHE-318613

PATIENT
  Age: 36 Year
  Sex: Male
  Weight: 102.5 kg

DRUGS (17)
  1. DACLIZUMAB [Suspect]
     Dosage: FOR 4 DOSES
     Route: 042
     Dates: start: 20020512, end: 20020625
  2. DACLIZUMAB [Suspect]
     Route: 042
     Dates: start: 20020708, end: 20020708
  3. MYCOPHENOLATE MOFETIL [Suspect]
     Route: 048
     Dates: start: 20020512, end: 20020708
  4. MYCOPHENOLATE MOFETIL [Suspect]
     Route: 048
  5. PREDNISONE [Concomitant]
     Dates: start: 20020722
  6. NEORAL [Concomitant]
     Dates: start: 20020613
  7. BETALOL [Concomitant]
     Dates: start: 20020702
  8. VALTREX [Concomitant]
     Dates: start: 20020512
  9. BACTRIM [Concomitant]
     Dates: start: 20020512
  10. LIPITOR [Concomitant]
     Dates: start: 19980615
  11. RANITIDINE [Concomitant]
     Dates: start: 20020512
  12. FERROGRADUMET [Concomitant]
     Dates: start: 20020601
  13. FOLATE [Concomitant]
     Dates: start: 20020601
  14. CLEXANE [Concomitant]
     Dates: start: 20020801
  15. BETALOC [Concomitant]
     Dates: start: 20020902
  16. COVERSYL [Concomitant]
     Dates: start: 20020618
  17. GANCICLOVIR [Concomitant]
     Dates: start: 20021224

REACTIONS (5)
  - CATHETER RELATED COMPLICATION [None]
  - CYTOMEGALOVIRUS INFECTION [None]
  - DEEP VEIN THROMBOSIS [None]
  - DIARRHOEA [None]
  - PYREXIA [None]
